FAERS Safety Report 8129590-2 (Version None)
Quarter: 2012Q1

REPORT INFORMATION
  Report Type: 
  Country: None (occurrence: None)
  Receive Date: 20120210
  Receipt Date: 20120207
  Transmission Date: 20120608
  Serious: Yes (Congenital Anomaly)
  Sender: FDA-Public Use
  Company Number: US-GLAXOSMITHKLINE-A0963963A

PATIENT
  Sex: Female

DRUGS (2)
  1. CELEXA [Concomitant]
     Indication: DEPRESSION
     Route: 064
  2. PAROXETINE HYDROCHLORIDE [Suspect]
     Indication: PRODUCT USED FOR UNKNOWN INDICATION
     Route: 064
     Dates: start: 20060222, end: 20060901

REACTIONS (2)
  - FOETAL EXPOSURE DURING PREGNANCY [None]
  - CLEFT LIP AND PALATE [None]
